FAERS Safety Report 5334786-9 (Version None)
Quarter: 2007Q2

REPORT INFORMATION
  Report Type: 
  Country: None (occurrence: None)
  Receive Date: 20070525
  Receipt Date: 20070516
  Transmission Date: 20071010
  Serious: Yes (Hospitalization, Other)
  Sender: FDA-Public Use
  Company Number: PHBS2007TR08173

PATIENT
  Age: 57 Year
  Sex: Male

DRUGS (1)
  1. GLEEVEC [Suspect]
     Indication: CHRONIC MYELOID LEUKAEMIA
     Dosage: 400 MG/DAY
     Dates: start: 20060315

REACTIONS (10)
  - ANGIOEDEMA [None]
  - EXCORIATION [None]
  - NO THERAPEUTIC RESPONSE [None]
  - OEDEMA [None]
  - PIGMENTATION DISORDER [None]
  - RASH PAPULAR [None]
  - SKIN EXFOLIATION [None]
  - SKIN LESION [None]
  - SKIN MACERATION [None]
  - XEROSIS [None]
